FAERS Safety Report 11616009 (Version 1)
Quarter: 2015Q4

REPORT INFORMATION
  Report Type: Report from Study
  Country: DE (occurrence: DE)
  Receive Date: 20151009
  Receipt Date: 20151009
  Transmission Date: 20160304
  Serious: Yes (Hospitalization)
  Sender: FDA-Public Use
  Company Number: PHHO2015DE014961

PATIENT
  Age: 53 Year
  Sex: Male
  Weight: 80 kg

DRUGS (1)
  1. AIN457 [Suspect]
     Active Substance: SECUKINUMAB
     Indication: PSORIASIS
     Dosage: 300 MG, WEEKLY ONCE FOR 4 WEEKS; AND THEREAFTER EVERY 4 WEEKS
     Route: 058
     Dates: start: 20150901, end: 20150922

REACTIONS (1)
  - Abscess jaw [Recovering/Resolving]

NARRATIVE: CASE EVENT DATE: 20150922
